FAERS Safety Report 7973214-1 (Version None)
Quarter: 2011Q4

REPORT INFORMATION
  Report Type: 
  Country: None (occurrence: None)
  Receive Date: 20111213
  Receipt Date: 20111207
  Transmission Date: 20120403
  Serious: Yes (Hospitalization)
  Sender: FDA-Public Use
  Company Number: FR-EISAI INC-E2090-01606-SPO-FR

PATIENT
  Sex: Female
  Weight: 70 kg

DRUGS (6)
  1. ZONEGRAN [Suspect]
     Route: 048
     Dates: start: 20090101, end: 20100601
  2. LAMICTAL [Concomitant]
     Indication: EPILEPSY
     Route: 048
     Dates: start: 20080101
  3. ZONEGRAN [Suspect]
     Dosage: UNKNOWN
     Route: 048
     Dates: start: 20091005, end: 20090101
  4. BENZODIAZEPINE [Concomitant]
  5. URBANYL [Concomitant]
     Indication: EPILEPSY
     Route: 048
     Dates: start: 20080101
  6. TRILEPTAL [Concomitant]
     Indication: EPILEPSY
     Route: 048
     Dates: start: 20060101

REACTIONS (7)
  - DELIRIUM [None]
  - PSYCHOTIC DISORDER [None]
  - SPEECH DISORDER [None]
  - HALLUCINATION, AUDITORY [None]
  - AGITATION [None]
  - RESTLESSNESS [None]
  - CRYING [None]
